FAERS Safety Report 6387248-4 (Version None)
Quarter: 2009Q4

REPORT INFORMATION
  Report Type: 
  Country: None (occurrence: None)
  Receive Date: 20091002
  Receipt Date: 20091001
  Transmission Date: 20100525
  Serious: Yes (Other)
  Sender: FDA-Public Use
  Company Number: CH-ABBOTT-09P-151-0598559-00

PATIENT
  Age: 43 Year
  Sex: Female

DRUGS (13)
  1. CLARITHROMYCIN [Suspect]
     Indication: DRUG USE FOR UNKNOWN INDICATION
     Route: 041
     Dates: start: 20081218, end: 20081222
  2. FLUCONAZOLE [Suspect]
     Indication: INTERTRIGO CANDIDA
     Dosage: 100 - 200 MG PER DAY/ IRREGULAR
     Route: 048
     Dates: start: 20081114, end: 20090728
  3. FLUCONAZOLE [Suspect]
     Dates: start: 20090729
  4. TEMODAL [Suspect]
     Indication: CHEMOTHERAPY
     Route: 065
     Dates: start: 20081111, end: 20081209
  5. SULFAMETHOXAZOLE AND TRIMETHOPRIM [Suspect]
     Indication: DRUG USE FOR UNKNOWN INDICATION
     Route: 048
     Dates: start: 20081111, end: 20081215
  6. OMEPRAZOLE [Suspect]
     Indication: DRUG USE FOR UNKNOWN INDICATION
     Route: 048
     Dates: start: 20081215, end: 20081218
  7. IMIPENEM AND CILASTATIN SODIUM [Suspect]
     Indication: DRUG USE FOR UNKNOWN INDICATION
     Route: 041
     Dates: start: 20081218, end: 20081230
  8. ONDANSETRON [Suspect]
     Indication: DRUG USE FOR UNKNOWN INDICATION
     Route: 048
     Dates: start: 20080830, end: 20081211
  9. FILGRASTATIM [Suspect]
     Indication: DRUG USE FOR UNKNOWN INDICATION
     Route: 065
  10. DEXAMETHASONE 0.5MG TAB [Concomitant]
     Indication: DRUG USE FOR UNKNOWN INDICATION
     Route: 065
  11. PREGABALIN [Concomitant]
     Indication: DRUG USE FOR UNKNOWN INDICATION
     Route: 048
     Dates: start: 20081113
  12. ESOMEPRAZOLE [Concomitant]
     Indication: DRUG USE FOR UNKNOWN INDICATION
     Route: 048
  13. PARACETAMOL [Concomitant]
     Indication: DRUG USE FOR UNKNOWN INDICATION
     Route: 048

REACTIONS (1)
  - LIVER INJURY [None]
